FAERS Safety Report 7647659-3 (Version None)
Quarter: 2011Q3

REPORT INFORMATION
  Report Type: 
  Country: None (occurrence: None)
  Receive Date: 20110801
  Receipt Date: 20110801
  Transmission Date: 20111222
  Serious: Yes (Other)
  Sender: FDA-Public Use
  Company Number: None

PATIENT
  Sex: Female
  Weight: 43.6 kg

DRUGS (1)
  1. INFLIXIMAB [Suspect]
     Dosage: 300 MG
     Route: 041

REACTIONS (7)
  - ABDOMINAL PAIN [None]
  - DYSPNOEA [None]
  - CHEST DISCOMFORT [None]
  - BACK PAIN [None]
  - FEELING HOT [None]
  - PHARYNGEAL OEDEMA [None]
  - FLUSHING [None]
